FAERS Safety Report 11105810 (Version 1)
Quarter: 2015Q2

REPORT INFORMATION
  Report Type: Spontaneous
  Country: GB (occurrence: GB)
  Receive Date: 20150512
  Receipt Date: 20150512
  Transmission Date: 20150821
  Serious: Yes (Death)
  Sender: FDA-Public Use
  Company Number: GB-BEH-2013037061

PATIENT
  Age: 39 Year
  Sex: Female

DRUGS (1)
  1. INTRAVENOUS POOLED HUMAN IMMUNOGLOBULIN G [Suspect]
     Active Substance: HUMAN IMMUNOGLOBULIN G
     Indication: STREPTOCOCCAL INFECTION

REACTIONS (3)
  - General physical health deterioration [None]
  - Drug ineffective for unapproved indication [Fatal]
  - Infection [Fatal]
